FAERS Safety Report 7711982-4 (Version None)
Quarter: 2011Q3

REPORT INFORMATION
  Report Type: 
  Country: None (occurrence: None)
  Receive Date: 20110826
  Receipt Date: 20110817
  Transmission Date: 20111222
  Serious: Yes (Hospitalization)
  Sender: FDA-Public Use
  Company Number: US-JNJFOC-20110809711

PATIENT
  Sex: Female
  Weight: 65.77 kg

DRUGS (7)
  1. NORVIR [Concomitant]
     Indication: HIV INFECTION
     Route: 048
     Dates: start: 20100901
  2. BACTRIM [Concomitant]
     Indication: HIV INFECTION
     Route: 048
     Dates: start: 20100901, end: 20110816
  3. ACYCLOVIR [Concomitant]
     Indication: HERPES VIRUS INFECTION
     Route: 048
  4. TRUVADA [Concomitant]
     Indication: HIV INFECTION
     Route: 048
     Dates: start: 20100901
  5. PREZISTA [Suspect]
     Indication: HIV INFECTION
     Route: 048
     Dates: start: 20100901
  6. COMPAZINE [Concomitant]
     Indication: VOMITING
     Dates: start: 20070101
  7. COMPAZINE [Concomitant]
     Indication: NAUSEA
     Dates: start: 20070101

REACTIONS (8)
  - DECREASED APPETITE [None]
  - VOMITING [None]
  - ORAL DISCHARGE [None]
  - MYOCARDIAL INFARCTION [None]
  - NAUSEA [None]
  - DIARRHOEA [None]
  - DRY MOUTH [None]
  - WEIGHT INCREASED [None]
